FAERS Safety Report 25186519 (Version 1)
Quarter: 2025Q2

REPORT INFORMATION
  Report Type: Spontaneous
  Country: TN (occurrence: TN)
  Receive Date: 20250411
  Receipt Date: 20250411
  Transmission Date: 20250716
  Serious: Yes (Other)
  Sender: DENTSPLY
  Company Number: TN-DENTSPLY-2025SCDP000109

PATIENT
  Age: 45 Day
  Sex: Male
  Weight: 3.56 kg

DRUGS (1)
  1. LIDOCAINE [Suspect]
     Active Substance: LIDOCAINE
     Indication: Nerve block

REACTIONS (1)
  - Neurotoxicity [Recovering/Resolving]
